FAERS Safety Report 12902997 (Version 1)
Quarter: 2016Q4

REPORT INFORMATION
  Report Type: Spontaneous
  Country: US (occurrence: US)
  Receive Date: 20161102
  Receipt Date: 20161102
  Transmission Date: 20170207
  Serious: No
  Sender: FDA-Public Use
  Company Number: US-GLAXOSMITHKLINE-US2016161170

PATIENT
  Age: 67 Year
  Sex: Male

DRUGS (1)
  1. TRANSDERM SCOP [Suspect]
     Active Substance: SCOPOLAMINE
     Indication: PROGRESSIVE SUPRANUCLEAR PALSY
     Dosage: UNK
     Dates: start: 201607

REACTIONS (5)
  - Therapeutic response unexpected [Unknown]
  - Drug ineffective for unapproved indication [Unknown]
  - Application site pruritus [Unknown]
  - Off label use [Unknown]
  - Application site rash [Unknown]

NARRATIVE: CASE EVENT DATE: 201610
